FAERS Safety Report 13567092 (Version 1)
Quarter: 2017Q2

REPORT INFORMATION
  Report Type: Spontaneous
  Country: US (occurrence: US)
  Receive Date: 20170521
  Receipt Date: 20170521
  Transmission Date: 20170830
  Serious: Yes (Hospitalization)
  Sender: FDA-Public Use
  Company Number: None

PATIENT
  Age: 84 Year
  Sex: Male
  Weight: 102 kg

DRUGS (10)
  1. CLARITIN [Concomitant]
     Active Substance: LORATADINE
  2. CELEXA [Concomitant]
     Active Substance: CITALOPRAM HYDROBROMIDE
  3. LISPRO [Concomitant]
     Active Substance: INSULIN LISPRO
  4. COZAAR [Concomitant]
     Active Substance: LOSARTAN POTASSIUM
  5. METFORMIN [Concomitant]
     Active Substance: METFORMIN HYDROCHLORIDE
  6. PRAVASTATIN. [Concomitant]
     Active Substance: PRAVASTATIN
  7. NINTEDANIB [Suspect]
     Active Substance: NINTEDANIB
     Indication: PULMONARY FIBROSIS
     Route: 048
  8. ASPIRIN. [Concomitant]
     Active Substance: ASPIRIN
  9. PLAVIX [Concomitant]
     Active Substance: CLOPIDOGREL BISULFATE
  10. LANTUS [Concomitant]
     Active Substance: INSULIN GLARGINE

REACTIONS (1)
  - Seizure [None]

NARRATIVE: CASE EVENT DATE: 20170519
